FAERS Safety Report 16661467 (Version 2)
Quarter: 2020Q3

REPORT INFORMATION
  Report Type: Report from Study
  Country: US (occurrence: US)
  Receive Date: 20190802
  Receipt Date: 20200826
  Transmission Date: 20201102
  Serious: No
  Sender: FDA-Public Use
  Company Number: PHEH2019US031569

PATIENT
  Age: 62 Year
  Sex: Female

DRUGS (2)
  1. GLATOPA [Suspect]
     Active Substance: GLATIRAMER ACETATE
     Indication: MULTIPLE SCLEROSIS
  2. GLATOPA [Suspect]
     Active Substance: GLATIRAMER ACETATE
     Indication: RELAPSING MULTIPLE SCLEROSIS
     Dosage: 40 MG, QOD
     Route: 058
     Dates: start: 20190107

REACTIONS (8)
  - Injection site erythema [Unknown]
  - Hypoaesthesia [Unknown]
  - Injection site warmth [Unknown]
  - Injection site inflammation [Unknown]
  - Myalgia [Unknown]
  - Hypersensitivity [Unknown]
  - Injection site pain [Unknown]
  - Product contamination [Unknown]

NARRATIVE: CASE EVENT DATE: 20190729
